FAERS Safety Report 19543458 (Version 1)
Quarter: 2021Q3

REPORT INFORMATION
  Report Type: Spontaneous
  Country: DE (occurrence: DE)
  Receive Date: 20210714
  Receipt Date: 20210714
  Transmission Date: 20211014
  Serious: Yes (Hospitalization)
  Sender: FDA-Public Use
  Company Number: DE-TEVA-2021-DE-1931675

PATIENT
  Age: 88 Year
  Sex: Female

DRUGS (16)
  1. LIPROLOG 100EINHEITEN/ML INJEKTIONSL SUNG [Concomitant]
     Dosage: ACCORDING TO THE SCHEME
     Route: 058
  2. PANTOPRAZOL [Concomitant]
     Active Substance: PANTOPRAZOLE SODIUM
     Dosage: 20 MILLIGRAM DAILY; 0?0?1?0
     Route: 048
  3. ASS 100?1A PHARMA TAH [Concomitant]
     Dosage: 100 MILLIGRAM DAILY; 0?1?0?0
     Route: 048
  4. TRESIBA [Concomitant]
     Active Substance: INSULIN DEGLUDEC
     Dosage: 46 IU (INTERNATIONAL UNIT) DAILY; 0?0?0?1
     Route: 058
  5. CITALOPRAM [Concomitant]
     Active Substance: CITALOPRAM HYDROBROMIDE
     Dosage: 10 MILLIGRAM DAILY; 1?0?0?0
     Route: 048
  6. RAMIPRIL. [Concomitant]
     Active Substance: RAMIPRIL
     Dosage: 2.5 MILLIGRAM DAILY; 1?0?0?0
     Route: 048
  7. MOVICOL BEUTEL [Concomitant]
     Active Substance: POLYETHYLENE GLYCOL 3350\POTASSIUM CHLORIDE\SODIUM BICARBONATE\SODIUM CHLORIDE
     Dosage: 1 DOSAGE FORMS DAILY; 1?0?0?0
     Route: 048
  8. SIMVASTATIN. [Concomitant]
     Active Substance: SIMVASTATIN
     Dosage: 40 MILLIGRAM DAILY; 0?0?1?0
     Route: 048
  9. TORASEMIDE [Suspect]
     Active Substance: TORSEMIDE
     Dosage: 20 MILLIGRAM DAILY; 1?0?1?0
     Route: 048
  10. REKAWAN [Concomitant]
     Active Substance: POTASSIUM CHLORIDE
     Dosage: 8 MILLIMOL DAILY; 1?0?0?0, SUSTAINED?RELEASE TABLETS
     Route: 048
  11. XIPAMID [Concomitant]
     Active Substance: XIPAMIDE
     Dosage: 10 MILLIGRAM DAILY; 1?0?0?0
     Route: 048
  12. MAGNESIUM [Concomitant]
     Active Substance: MAGNESIUM
     Dosage: 300 MILLIGRAM DAILY; 1?0?1?0
     Route: 048
  13. DONEPEZIL. [Concomitant]
     Active Substance: DONEPEZIL
     Dosage: 10 MILLIGRAM DAILY;  0?0?1?0
     Route: 048
  14. EMPAGLIFLOZIN [Suspect]
     Active Substance: EMPAGLIFLOZIN
     Dosage: 1 DOSAGE FORMS DAILY; 1?0?0?0
     Route: 048
  15. DEKRISTOL 1000I.E. [Concomitant]
     Dosage: 2 DOSAGE FORMS DAILY; 1000 IU, 0?2?0?0
     Route: 048
  16. OZEMPIC [Suspect]
     Active Substance: SEMAGLUTIDE
     Dosage: 1 MILLIGRAM DAILY; 1?0?0?0, PRE?FILLED SYRINGES
     Route: 058

REACTIONS (4)
  - Blood glucose fluctuation [Unknown]
  - General physical health deterioration [Unknown]
  - Arrhythmia [Unknown]
  - Fatigue [Unknown]
